FAERS Safety Report 6980285-8 (Version None)
Quarter: 2010Q3

REPORT INFORMATION
  Report Type: 
  Country: None (occurrence: None)
  Receive Date: 20100909
  Receipt Date: 20100830
  Transmission Date: 20110219
  Serious: Yes (Hospitalization)
  Sender: FDA-Public Use
  Company Number: ENTC2010-0298

PATIENT
  Age: 67 Year
  Sex: Male

DRUGS (13)
  1. STALEVO 100 [Suspect]
     Indication: PARKINSON'S DISEASE
     Dosage: 125/31.25/200 MG X 4 ORAL; 100/25/200 MG X 4 ORAL
     Route: 048
     Dates: start: 20071003, end: 20100701
  2. PRAMIPEXOLE DIHYDROCHLORIDE [Suspect]
     Dosage: 0.5 MGD ORAL
     Route: 048
  3. WARFARIN SODIUM [Suspect]
     Dosage: ORAL
     Route: 048
  4. ENALAPRIL MALEATE [Suspect]
     Dosage: ORAL
     Route: 048
     Dates: end: 20100705
  5. AVODART [Concomitant]
  6. CRESTOR [Concomitant]
  7. NULYTELY [Concomitant]
  8. PLAVIX [Concomitant]
  9. NITROMEX [Concomitant]
  10. ACETAMINOPHEN [Concomitant]
  11. LAXOBERAL [Concomitant]
  12. CLOZAPINE ACTAVIS [Concomitant]
  13. ZOPIKLON MYALN [Concomitant]

REACTIONS (9)
  - BLOOD CREATININE INCREASED [None]
  - CONDITION AGGRAVATED [None]
  - CONFUSIONAL STATE [None]
  - HAEMOGLOBIN DECREASED [None]
  - HALLUCINATION [None]
  - HYPOTENSION [None]
  - INTERNATIONAL NORMALISED RATIO INCREASED [None]
  - PARKINSON'S DISEASE [None]
  - PROTHROMBIN LEVEL DECREASED [None]
